FAERS Safety Report 6551423-6 (Version None)
Quarter: 2010Q1

REPORT INFORMATION
  Report Type: 
  Country: None (occurrence: None)
  Receive Date: 20100120
  Receipt Date: 20100107
  Transmission Date: 20100710
  Serious: Yes (Hospitalization)
  Sender: FDA-Public Use
  Company Number: 004438

PATIENT
  Sex: Female
  Weight: 79.3795 kg

DRUGS (9)
  1. CIMZIA [Suspect]
     Indication: CROHN'S DISEASE
     Dosage: (400 MG 1X/MONTH, MONTHLY SUBCUTANEOUS)
     Route: 058
     Dates: start: 20090421
  2. HYDROCHLOROTHIAZIDE [Concomitant]
  3. METHADONE [Concomitant]
  4. FENTANYL [Concomitant]
  5. CORTEF /00028601/ [Concomitant]
  6. VOLTAREN [Concomitant]
  7. XANAX [Concomitant]
  8. ZOLOFT [Concomitant]
  9. DILAUDID [Concomitant]

REACTIONS (4)
  - BREAST PROSTHESIS USER [None]
  - IMPLANT SITE INFLAMMATION [None]
  - IMPLANT SITE PAIN [None]
  - URINARY TRACT INFECTION [None]
